FAERS Safety Report 13407818 (Version 2)
Quarter: 2017Q2

REPORT INFORMATION
  Report Type: Other
  Country: GB (occurrence: GB)
  Receive Date: 20170406
  Receipt Date: 20170418
  Transmission Date: 20170830
  Serious: Yes (Hospitalization, Disabling)
  Sender: FDA-Public Use
  Company Number: GB-DEXPHARM-20170504

PATIENT
  Age: 87 Year
  Sex: Male

DRUGS (8)
  1. SIMVASTATIN. [Concomitant]
     Active Substance: SIMVASTATIN
  2. LORAZEPAM. [Concomitant]
     Active Substance: LORAZEPAM
  3. CITALOPRAM [Interacting]
     Active Substance: CITALOPRAM HYDROBROMIDE
  4. LOSARTAN. [Concomitant]
     Active Substance: LOSARTAN
  5. LAMOTRIGINE. [Concomitant]
     Active Substance: LAMOTRIGINE
  6. MEMANTINE. [Concomitant]
     Active Substance: MEMANTINE
  7. DONEPEZIL. [Interacting]
     Active Substance: DONEPEZIL
  8. OMEPRAZOLE. [Suspect]
     Active Substance: OMEPRAZOLE
     Dosage: DAILY DOSE: 80 MG MILLGRAM(S) EVERY DAYS

REACTIONS (2)
  - Drug interaction [Recovered/Resolved]
  - Pleurothotonus [Recovered/Resolved]
